FAERS Safety Report 10217784 (Version 2)
Quarter: 2014Q2

REPORT INFORMATION
  Report Type: Report from Study
  Country: CA (occurrence: CA)
  Receive Date: 20140604
  Receipt Date: 20140626
  Transmission Date: 20141212
  Serious: Yes (Hospitalization, Other)
  Sender: FDA-Public Use
  Company Number: CA-US-EMD SERONO, INC.-7295734

PATIENT
  Sex: Female

DRUGS (3)
  1. REBIF [Suspect]
     Indication: RELAPSING-REMITTING MULTIPLE SCLEROSIS
     Route: 058
     Dates: start: 20100526, end: 20140610
  2. AMITRIPTYLINE [Concomitant]
     Indication: HEADACHE
     Route: 048
     Dates: start: 20100423
  3. AMITRIPTYLINE [Concomitant]
     Indication: SLEEP DISORDER

REACTIONS (6)
  - Gallbladder disorder [Recovering/Resolving]
  - Hepatic mass [Unknown]
  - Cholelithiasis [Unknown]
  - Tracheal mass [Unknown]
  - Somnolence [Unknown]
  - Fatigue [Unknown]
